FAERS Safety Report 6623553-1 (Version None)
Quarter: 2010Q1

REPORT INFORMATION
  Report Type: 
  Country: None (occurrence: None)
  Receive Date: 20100304
  Receipt Date: 20100226
  Transmission Date: 20100710
  Serious: Yes (Hospitalization)
  Sender: FDA-Public Use
  Company Number: URSO-2010-001 FUP1

PATIENT
  Age: 76 Year
  Sex: Male

DRUGS (3)
  1. URSODIOL [Suspect]
     Indication: CHOLANGITIS SCLEROSING
     Dosage: 900MG
  2. IMURAN [Suspect]
     Indication: CHOLANGITIS SCLEROSING
     Dosage: 50MG, ORAL
     Route: 048
  3. PREDNISOLONE [Suspect]
     Dosage: 40MG, ORAL
     Route: 048

REACTIONS (2)
  - BILIARY DILATATION [None]
  - BILIARY TRACT INFECTION [None]
